FAERS Safety Report 16917022 (Version 2)
Quarter: 2019Q4

REPORT INFORMATION
  Report Type: Spontaneous
  Country: US (occurrence: US)
  Receive Date: 20191015
  Receipt Date: 20191115
  Transmission Date: 20200122
  Serious: No
  Sender: FDA-Public Use
  Company Number: US-009507513-1910USA006659

PATIENT
  Age: 34 Year
  Sex: Female
  Weight: 77.55 kg

DRUGS (2)
  1. NEXPLANON [Suspect]
     Active Substance: ETONOGESTREL
     Dosage: 1 IMPLANT, 68 MG
     Route: 059
     Dates: start: 20190815
  2. NEXPLANON [Suspect]
     Active Substance: ETONOGESTREL
     Indication: CONTRACEPTION
     Dosage: 1 IMPLANT, 68 MG
     Route: 059
     Dates: end: 20190815

REACTIONS (3)
  - Incorrect product administration duration [Unknown]
  - Complication associated with device [Not Recovered/Not Resolved]
  - Chest pain [Unknown]

NARRATIVE: CASE EVENT DATE: 2019
